FAERS Safety Report 5898218-4 (Version None)
Quarter: 2008Q3

REPORT INFORMATION
  Report Type: 
  Country: None (occurrence: None)
  Receive Date: 20080918
  Receipt Date: 20080522
  Transmission Date: 20090109
  Serious: Yes (Other)
  Sender: FDA-Public Use
  Company Number: 08-000838

PATIENT
  Sex: Female

DRUGS (2)
  1. LOESTRIN 24 FE [Suspect]
     Dosage: 20/1000UG, QD, ORAL
     Route: 048
     Dates: start: 20080501
  2. MIRENA [Concomitant]

REACTIONS (4)
  - ABDOMINAL PAIN LOWER [None]
  - BACK PAIN [None]
  - PAIN IN EXTREMITY [None]
  - VAGINAL HAEMORRHAGE [None]
